FAERS Safety Report 7919844-4 (Version None)
Quarter: 2011Q4

REPORT INFORMATION
  Report Type: 
  Country: None (occurrence: None)
  Receive Date: 20111115
  Receipt Date: 20111110
  Transmission Date: 20120403
  Serious: Yes (Other)
  Sender: FDA-Public Use
  Company Number: 2011SP051042

PATIENT
  Sex: Female
  Weight: 64 kg

DRUGS (1)
  1. IMPLANON [Suspect]
     Indication: PRODUCT USED FOR UNKNOWN INDICATION
     Dosage: 1 DF

REACTIONS (3)
  - PREGNANCY WITH IMPLANT CONTRACEPTIVE [None]
  - FOETAL EXPOSURE DURING PREGNANCY [None]
  - ABORTION [None]
